FAERS Safety Report 8470115-X (Version None)
Quarter: 2012Q2

REPORT INFORMATION
  Report Type: 
  Country: None (occurrence: None)
  Receive Date: 20120627
  Receipt Date: 20120618
  Transmission Date: 20120825
  Serious: No
  Sender: FDA-Public Use
  Company Number: US-BIOGENIDEC-2011BI020347

PATIENT
  Sex: Male

DRUGS (3)
  1. AVONEX [Suspect]
     Route: 030
     Dates: start: 20080505
  2. AVONEX [Suspect]
     Indication: MULTIPLE SCLEROSIS
     Route: 030
     Dates: start: 19960401, end: 20030423
  3. AVONEX [Suspect]
     Route: 030
     Dates: start: 20060607

REACTIONS (3)
  - MULTIPLE SCLEROSIS RELAPSE [None]
  - REACTION TO PRESERVATIVES [None]
  - INFLUENZA LIKE ILLNESS [None]
